FAERS Safety Report 10039294 (Version 2)
Quarter: 2014Q2

REPORT INFORMATION
  Report Type: Spontaneous
  Country: DK (occurrence: DK)
  Receive Date: 20140326
  Receipt Date: 20140401
  Transmission Date: 20141212
  Serious: Yes (Other)
  Sender: FDA-Public Use
  Company Number: PHHY2014DK034883

PATIENT
  Sex: 0

DRUGS (8)
  1. RITALIN [Suspect]
     Indication: ATTENTION DEFICIT/HYPERACTIVITY DISORDER
     Dosage: UNK UKN, UNK
     Route: 064
  2. RITALIN [Suspect]
     Dosage: UNK UKN, UNK
     Route: 063
  3. STRATTERA [Suspect]
     Indication: ATTENTION DEFICIT/HYPERACTIVITY DISORDER
     Dosage: MATERNAL DOSE: 80 MG, (3 MILGRAMS) QD
     Route: 064
  4. STRATTERA [Suspect]
     Dosage: MATERNAL DOSE: 80 MG, (3 MILGRAMS) QD
     Route: 063
  5. MOTIRON [Concomitant]
     Dosage: UNK UKN, UNK
     Route: 064
  6. MOTIRON [Concomitant]
     Dosage: UNK UKN, UNK
     Route: 063
  7. CANNABIS [Concomitant]
     Dosage: UNK UKN, UNK
     Route: 064
  8. CANNABIS [Concomitant]
     Dosage: UNK
     Route: 063

REACTIONS (3)
  - Sensorimotor disorder [Unknown]
  - Exposure during breast feeding [Recovered/Resolved]
  - Foetal exposure during pregnancy [Unknown]
